FAERS Safety Report 6257953-9 (Version None)
Quarter: 2009Q3

REPORT INFORMATION
  Report Type: 
  Country: None (occurrence: None)
  Receive Date: 20090707
  Receipt Date: 20070913
  Transmission Date: 20100115
  Serious: Yes (Other)
  Sender: FDA-Public Use
  Company Number: US-ASTRAZENECA-2007UW19145

PATIENT
  Age: 19897 Day
  Sex: Male
  Weight: 90.7 kg

DRUGS (28)
  1. SEROQUEL [Suspect]
     Indication: POST-TRAUMATIC STRESS DISORDER
     Route: 048
     Dates: start: 20010101
  2. SEROQUEL [Suspect]
     Indication: SLEEP DISORDER
     Route: 048
     Dates: start: 20010101
  3. SEROQUEL [Suspect]
     Indication: ANXIETY
     Route: 048
     Dates: start: 20010101
  4. SEROQUEL [Suspect]
     Indication: AGITATION
     Route: 048
     Dates: start: 20010101
  5. SEROQUEL [Suspect]
     Indication: NIGHTMARE
     Route: 048
     Dates: start: 20010101
  6. SEROQUEL [Suspect]
     Dosage: 12.5 MG TO 50 MG AT NIGHT
     Route: 048
     Dates: start: 20030625
  7. SEROQUEL [Suspect]
     Dosage: 12.5 MG TO 50 MG AT NIGHT
     Route: 048
     Dates: start: 20030625
  8. SEROQUEL [Suspect]
     Dosage: 12.5 MG TO 50 MG AT NIGHT
     Route: 048
     Dates: start: 20030625
  9. SEROQUEL [Suspect]
     Dosage: 12.5 MG TO 50 MG AT NIGHT
     Route: 048
     Dates: start: 20030625
  10. SEROQUEL [Suspect]
     Dosage: 12.5 MG TO 50 MG AT NIGHT
     Route: 048
     Dates: start: 20030625
  11. SEROQUEL [Suspect]
     Dosage: 25 MG EVERY EIGHT HOURS AS REQUIRED AND ONE TO TWO TABLETS AT BEDTIME
     Route: 048
     Dates: start: 20030625
  12. SEROQUEL [Suspect]
     Dosage: 25 MG EVERY EIGHT HOURS AS REQUIRED AND ONE TO TWO TABLETS AT BEDTIME
     Route: 048
     Dates: start: 20030625
  13. SEROQUEL [Suspect]
     Dosage: 25 MG EVERY EIGHT HOURS AS REQUIRED AND ONE TO TWO TABLETS AT BEDTIME
     Route: 048
     Dates: start: 20030625
  14. SEROQUEL [Suspect]
     Dosage: 25 MG EVERY EIGHT HOURS AS REQUIRED AND ONE TO TWO TABLETS AT BEDTIME
     Route: 048
     Dates: start: 20030625
  15. SEROQUEL [Suspect]
     Dosage: 25 MG EVERY EIGHT HOURS AS REQUIRED AND ONE TO TWO TABLETS AT BEDTIME
     Route: 048
     Dates: start: 20030625
  16. IMIPRAMINE HCL [Concomitant]
     Dates: start: 20010101
  17. IMIPRAMINE HCL [Concomitant]
     Dosage: 50 MG TABLET, TAKE TWO TABLETS BY MOUTH AT BEDTIME
     Route: 048
     Dates: start: 20030319
  18. RISPERIDONE [Concomitant]
     Indication: AFFECTIVE DISORDER
     Dosage: 2 MG TABLET, TAKE 1 TO 2 TABLET BY MOUTH AT BEDTIME
     Route: 048
     Dates: start: 20020826
  19. RISPERIDONE [Concomitant]
     Indication: NIGHTMARE
     Dosage: 2 MG TABLET, TAKE 1 TO 2 TABLET BY MOUTH AT BEDTIME
     Route: 048
     Dates: start: 20020826
  20. RISPERIDONE [Concomitant]
     Indication: THINKING ABNORMAL
     Dosage: 2 MG TABLET, TAKE 1 TO 2 TABLET BY MOUTH AT BEDTIME
     Route: 048
     Dates: start: 20020826
  21. AMLODIPINE BESYLATE [Concomitant]
     Indication: BLOOD PRESSURE
     Dosage: 2.5 MG TABLET, TAKE TWO TABLETS BY MOUTH ONCE DAILY
     Route: 048
     Dates: start: 20020826
  22. GLYBURIDE [Concomitant]
     Indication: DIABETES MELLITUS
     Dosage: ONE-HALF OF 1.25 MG TABLET
     Route: 048
     Dates: start: 20020827
  23. COLESTIPOL HYDROCHLORIDE [Concomitant]
     Dosage: 5 MG PER PACKET, TAKE ONE PACKET BY MOUTH TWICE A DAY
     Route: 048
     Dates: start: 20030319
  24. CLOPIDOGREL BISULFATE [Concomitant]
     Indication: ANTICOAGULANT THERAPY
     Dosage: 75 MG TABLET, TAKE ONE TABLET BY MOUTH ONCE DAILY
     Route: 048
     Dates: start: 20070514
  25. FELODIPINE [Concomitant]
     Dosage: 10 MG SA TABLET, TAKE ONE TABLET BY MOUTH ONCE DAILY
     Route: 048
     Dates: start: 20070514
  26. HYDROCHLOROTHIAZIDE [Concomitant]
     Indication: BLOOD PRESSURE
     Dosage: 25 MG TABLET, TAKE ONE-HALF TABLET BY MOUTH EVERY MORNING
     Route: 048
     Dates: start: 20070514
  27. ROSIGLITAZONE MALEATE [Concomitant]
     Indication: DIABETES MELLITUS
     Dosage: 4 MG TABLET, TAKE ONE-HALF TABLET BY MOUTH ONCE DAILY
     Route: 048
     Dates: start: 20070514
  28. SIMVASTATIN [Concomitant]
     Indication: BLOOD CHOLESTEROL
     Dosage: 80 MG TABLET, TAKE ONE-HALF TABLET BY MOUTH EVERY EVENING
     Route: 048
     Dates: start: 20070514

REACTIONS (4)
  - DIABETES MELLITUS [None]
  - DIABETIC RETINOPATHY [None]
  - METABOLIC SYNDROME [None]
  - TYPE 2 DIABETES MELLITUS [None]
